FAERS Safety Report 6885278-7 (Version None)
Quarter: 2010Q3

REPORT INFORMATION
  Report Type: 
  Country: None (occurrence: None)
  Receive Date: 20100729
  Receipt Date: 20100722
  Transmission Date: 20110219
  Serious: Yes (Hospitalization)
  Sender: FDA-Public Use
  Company Number: US-AMGEN-KDC424984

PATIENT
  Age: 78 Year
  Sex: Female
  Weight: 56.1 kg

DRUGS (3)
  1. PANITUMUMAB [Suspect]
     Indication: PANCREATIC CARCINOMA
     Dates: start: 20100525
  2. GEMCITABINE [Suspect]
     Dates: start: 20100525
  3. TARCEVA [Suspect]
     Dates: start: 20100525

REACTIONS (3)
  - FATIGUE [None]
  - HYPONATRAEMIA [None]
  - PYREXIA [None]
